FAERS Safety Report 13259066 (Version 1)
Quarter: 2017Q1

REPORT INFORMATION
  Report Type: Spontaneous
  Country: GB (occurrence: GB)
  Receive Date: 20170222
  Receipt Date: 20170222
  Transmission Date: 20170428
  Serious: Yes (Hospitalization, Other)
  Sender: FDA-Public Use
  Company Number: GB-APOTEX-2017AP007014

PATIENT
  Age: 69 Year
  Sex: Male

DRUGS (1)
  1. CLOPIDOGREL APOTEX [Suspect]
     Active Substance: CLOPIDOGREL BISULFATE
     Indication: CEREBROVASCULAR ACCIDENT
     Route: 065

REACTIONS (5)
  - Peritonitis [Recovering/Resolving]
  - Rectal perforation [Recovering/Resolving]
  - Retroperitoneal haematoma [Recovering/Resolving]
  - Intestinal ischaemia [Recovering/Resolving]
  - Gastrointestinal necrosis [Recovering/Resolving]
